FAERS Safety Report 20231721 (Version 1)
Quarter: 2021Q4

REPORT INFORMATION
  Report Type: Spontaneous
  Country: US (occurrence: US)
  Receive Date: 20211227
  Receipt Date: 20211227
  Transmission Date: 20220303
  Serious: No
  Sender: FDA-Public Use
  Company Number: US-AVEO ONCOLOGY-2021-AVEO-US003701

PATIENT

DRUGS (14)
  1. FOTIVDA [Suspect]
     Active Substance: TIVOZANIB HYDROCHLORIDE
     Indication: Renal cell carcinoma
     Dosage: 1.34 MG, DAILY FOR 21 DAYS THEN 7 DAYS OFF
     Route: 048
     Dates: start: 20211030
  2. FLOVENT HFA [Concomitant]
     Active Substance: FLUTICASONE PROPIONATE
  3. PROCHLORPERAZINE [Concomitant]
     Active Substance: PROCHLORPERAZINE
  4. TYLENOL [Concomitant]
     Active Substance: ACETAMINOPHEN
  5. TAMSULOSIN [Concomitant]
     Active Substance: TAMSULOSIN
  6. VITAMIN D [Concomitant]
     Active Substance: VITAMIN D NOS
  7. FOLIC ACID [Concomitant]
     Active Substance: FOLIC ACID
  8. LEVOTHYROXINE [Concomitant]
     Active Substance: LEVOTHYROXINE
  9. ATORVASTATIN [Concomitant]
     Active Substance: ATORVASTATIN
  10. NABUMETONE [Concomitant]
     Active Substance: NABUMETONE
  11. OMEPRAZOLE [Concomitant]
     Active Substance: OMEPRAZOLE
  12. LISINOPRIL [Concomitant]
     Active Substance: LISINOPRIL
  13. CARVEDILOL [Concomitant]
     Active Substance: CARVEDILOL
  14. DEXAMETHASONE [Concomitant]
     Active Substance: DEXAMETHASONE

REACTIONS (1)
  - Blood pressure increased [Unknown]

NARRATIVE: CASE EVENT DATE: 20211115
